FAERS Safety Report 25625317 (Version 1)
Quarter: 2025Q3

REPORT INFORMATION
  Report Type: Spontaneous
  Country: CN (occurrence: CN)
  Receive Date: 20250731
  Receipt Date: 20250731
  Transmission Date: 20251020
  Serious: Yes (Hospitalization, Other)
  Sender: BAXTER
  Company Number: None

PATIENT
  Age: 60 Year
  Sex: Female
  Weight: 56 kg

DRUGS (6)
  1. CYCLOPHOSPHAMIDE [Suspect]
     Active Substance: CYCLOPHOSPHAMIDE
     Indication: Breast cancer stage II
     Dosage: 0.9 G, QD (INTRAPUMP INJECTION)
     Route: 042
     Dates: start: 20250710, end: 20250710
  2. CYCLOPHOSPHAMIDE [Suspect]
     Active Substance: CYCLOPHOSPHAMIDE
     Indication: Mucinous breast carcinoma
  3. SODIUM CHLORIDE [Suspect]
     Active Substance: SODIUM CHLORIDE
     Dosage: 0.9% NS 250 ML ST, QD (WITH DOCETAXEL INJECTION)
     Route: 042
     Dates: start: 20250710, end: 20250710
  4. SODIUM CHLORIDE [Suspect]
     Active Substance: SODIUM CHLORIDE
     Dosage: 0.9% NS 500 ML ST, QD (WITH CYCLOPHOSPHAMIDE FOR INJECTION)
     Route: 042
     Dates: start: 20250710, end: 20250710
  5. DOCETAXEL [Suspect]
     Active Substance: DOCETAXEL
     Indication: Breast cancer stage II
     Dosage: 120 MG, QD (INTRAPUMP INJECTION)
     Route: 042
     Dates: start: 20250710, end: 20250710
  6. DOCETAXEL [Suspect]
     Active Substance: DOCETAXEL
     Indication: Mucinous breast carcinoma

REACTIONS (4)
  - Abdominal distension [Unknown]
  - Myelosuppression [Recovering/Resolving]
  - Abdominal pain [Unknown]
  - Decreased appetite [Unknown]

NARRATIVE: CASE EVENT DATE: 20250714
